FAERS Safety Report 6560570-4 (Version None)
Quarter: 2010Q1

REPORT INFORMATION
  Report Type: 
  Country: None (occurrence: None)
  Receive Date: 20100129
  Receipt Date: 20090922
  Transmission Date: 20100710
  Serious: No
  Sender: FDA-Public Use
  Company Number: US-ABBOTT-09P-163-0598677-00

PATIENT
  Sex: Female
  Weight: 72.64 kg

DRUGS (3)
  1. HUMIRA [Suspect]
     Indication: RHEUMATOID ARTHRITIS
     Dates: start: 20090301
  2. PREDNISONE [Concomitant]
     Indication: DRUG USE FOR UNKNOWN INDICATION
  3. PREDNISONE [Concomitant]

REACTIONS (6)
  - ACNE [None]
  - ERYTHEMA [None]
  - INFLAMMATION [None]
  - PRURITUS [None]
  - SKIN INDURATION [None]
  - SWELLING [None]
